FAERS Safety Report 16393582 (Version 2)
Quarter: 2019Q3

REPORT INFORMATION
  Report Type: Report from Study
  Country: DE (occurrence: DE)
  Receive Date: 20190605
  Receipt Date: 20190703
  Transmission Date: 20191004
  Serious: Yes (Hospitalization)
  Sender: FDA-Public Use
  Company Number: DE-PFIZER INC-2019233851

PATIENT
  Age: 65 Year
  Sex: Male
  Weight: 78 kg

DRUGS (17)
  1. CARBOPLATIN. [Suspect]
     Active Substance: CARBOPLATIN
     Indication: NON-SMALL CELL LUNG CANCER
     Dosage: 640 MG, UNK (640 MILLIGRAM, FIRST LINE DOSE)
     Dates: start: 20190207, end: 20190227
  2. FORTECORTIN [DEXAMETHASONE SODIUM PHOSPHATE] [Concomitant]
     Dosage: 8 MG, 1X/DAY
     Route: 048
     Dates: end: 20190208
  3. FORTECORTIN [DEXAMETHASONE SODIUM PHOSPHATE] [Concomitant]
     Dosage: 4 MG, 1X/DAY
     Route: 048
     Dates: start: 20190209
  4. RAMIPRIL. [Concomitant]
     Active Substance: RAMIPRIL
     Dosage: 10 MG, DAILY (5 MILLIGRAM, BID -2X/DAY)
     Route: 048
  5. RANITIDINE. [Concomitant]
     Active Substance: RANITIDINE
     Dosage: 300 MG, 1X/DAY
     Route: 048
  6. ACETYLSALICYLIC ACID [Concomitant]
     Active Substance: ASPIRIN
     Dosage: 100 MG, 1X/DAY
     Route: 048
  7. SIMVASTATIN. [Concomitant]
     Active Substance: SIMVASTATIN
     Dosage: 20 MG, 1X/DAY
     Route: 048
  8. PEMETREXED DISODIUM [Suspect]
     Active Substance: PEMETREXED DISODIUM
     Indication: NON-SMALL CELL LUNG CANCER
     Dosage: 1000 MG, UNK (DOSE: 1000 MILLIGRAM, FIRST LINE DOSE)
     Dates: start: 20190207, end: 20190227
  9. CALCIUM HEXAL [Concomitant]
     Active Substance: CALCIUM CARBONATE
     Dosage: 500 MG, 1X/DAY (FIZZI TABLET)
     Route: 048
  10. PEMBROLIZUMAB. [Suspect]
     Active Substance: PEMBROLIZUMAB
     Dosage: 200 MG, DAILY
     Dates: start: 20190425, end: 20190515
  11. CARBOPLATIN. [Suspect]
     Active Substance: CARBOPLATIN
     Dosage: 500 MG, DAILY
     Dates: start: 20190425, end: 20190515
  12. AMLODIPIN HEXAL [AMLODIPINE BESILATE] [Concomitant]
     Dosage: 2500 UG, 1X/DAY
     Route: 048
  13. CITALOPRAM [Concomitant]
     Active Substance: CITALOPRAM HYDROBROMIDE
     Dosage: 10 MG, 1X/DAY
     Route: 048
  14. FOLSAN [Concomitant]
     Active Substance: FOLIC ACID
     Dosage: 400 UG, 1X/DAY
     Route: 048
  15. PEMETREXED DISODIUM [Suspect]
     Active Substance: PEMETREXED DISODIUM
     Dosage: 800 MG, UNK
     Dates: start: 20190425, end: 20190515
  16. PEMBROLIZUMAB. [Suspect]
     Active Substance: PEMBROLIZUMAB
     Indication: NON-SMALL CELL LUNG CANCER
     Dosage: 200 MG, DAILY
     Dates: start: 20190207, end: 20190227
  17. VIGANTOL [COLECALCIFEROL-CHOLESTERIN] [Concomitant]
     Dosage: 1000 IU, 1X/DAY
     Route: 048

REACTIONS (3)
  - Immune-mediated pneumonitis [Recovering/Resolving]
  - Immune-mediated pneumonitis [Recovering/Resolving]
  - Immune-mediated pneumonitis [Recovered/Resolved]

NARRATIVE: CASE EVENT DATE: 20190214
